FAERS Safety Report 9153121 (Version 1)
Quarter: 2013Q1

REPORT INFORMATION
  Report Type: Spontaneous
  Country: AU (occurrence: AU)
  Receive Date: 20130311
  Receipt Date: 20130311
  Transmission Date: 20140127
  Serious: Yes (Hospitalization, Other)
  Sender: FDA-Public Use
  Company Number: AU-009507513-1303AUS001640

PATIENT
  Age: 86 Year
  Sex: Male
  Weight: 75 kg

DRUGS (8)
  1. SIMVASTATIN [Suspect]
     Dosage: 40 MG, DAILY
     Route: 048
     Dates: end: 20121107
  2. CLARITHROMYCIN [Suspect]
     Dosage: 500 MG, DAILY
     Route: 048
     Dates: start: 20121017, end: 20121031
  3. CARVEDILOL [Concomitant]
  4. CHOLECALCIFEROL [Concomitant]
  5. CLOPIDOGREL [Concomitant]
  6. OMEGA-3 MARINE TRIGLYCERIDES [Concomitant]
  7. NITROGLYCERIN [Concomitant]
  8. HUMALOG MIX 50 [Concomitant]

REACTIONS (2)
  - Renal failure acute [Not Recovered/Not Resolved]
  - Rhabdomyolysis [Not Recovered/Not Resolved]
